FAERS Safety Report 7490515-4 (Version None)
Quarter: 2011Q2

REPORT INFORMATION
  Report Type: 
  Country: None (occurrence: None)
  Receive Date: 20110517
  Receipt Date: 20110517
  Transmission Date: 20111010
  Serious: No
  Sender: FDA-Public Use
  Company Number: None

PATIENT
  Age: 46 Year
  Sex: Female
  Weight: 63.5036 kg

DRUGS (1)
  1. HALDOL [Suspect]
     Indication: MAJOR DEPRESSION
     Dosage: 5MG QHS PO
     Route: 048
     Dates: start: 20110319, end: 20110324

REACTIONS (2)
  - DROOLING [None]
  - SPEECH DISORDER [None]
